FAERS Safety Report 13941570 (Version 1)
Quarter: 2017Q3

REPORT INFORMATION
  Report Type: Spontaneous
  Country: US (occurrence: US)
  Receive Date: 20170906
  Receipt Date: 20170906
  Transmission Date: 20171127
  Serious: Yes (Other)
  Sender: FDA-Public Use
  Company Number: US-ALEXION PHARMACEUTICALS INC.-A201709651

PATIENT

DRUGS (3)
  1. SOLIRIS [Suspect]
     Active Substance: ECULIZUMAB
     Indication: HAEMOLYTIC URAEMIC SYNDROME
     Dosage: 300 MG, QW
     Route: 042
  2. SOLIRIS [Suspect]
     Active Substance: ECULIZUMAB
     Indication: PNEUMOCOCCAL INFECTION
  3. SOLIRIS [Suspect]
     Active Substance: ECULIZUMAB
     Indication: OFF LABEL USE

REACTIONS (7)
  - Renal impairment [Not Recovered/Not Resolved]
  - Gangrene [Unknown]
  - Blood lactate dehydrogenase abnormal [Recovering/Resolving]
  - Platelet count abnormal [Recovering/Resolving]
  - Off label use [Unknown]
  - Complement factor abnormal [Unknown]
  - Haemoglobin abnormal [Unknown]
